FAERS Safety Report 21977815 (Version 2)
Quarter: 2023Q1

REPORT INFORMATION
  Report Type: Spontaneous
  Country: FR (occurrence: FR)
  Receive Date: 20230210
  Receipt Date: 20230302
  Transmission Date: 20230417
  Serious: Yes (Death, Other)
  Sender: FDA-Public Use
  Company Number: FR-BAXTER-2023BAX012397

PATIENT
  Sex: Male

DRUGS (1)
  1. EXTRANEAL [Suspect]
     Active Substance: CALCIUM CHLORIDE\ICODEXTRIN\MAGNESIUM CHLORIDE\SODIUM CHLORIDE\SODIUM LACTATE
     Route: 033

REACTIONS (4)
  - Death [Fatal]
  - Product packaging issue [Unknown]
  - Device connection issue [Unknown]
  - Poor quality product administered [Unknown]
